FAERS Safety Report 17482215 (Version 1)
Quarter: 2020Q1

REPORT INFORMATION
  Report Type: Spontaneous
  Country: PT (occurrence: PT)
  Receive Date: 20200302
  Receipt Date: 20200302
  Transmission Date: 20200409
  Serious: Yes (Other)
  Sender: FDA-Public Use
  Company Number: PT-SA-2020SA047208

PATIENT
  Age: 57 Year
  Sex: Female
  Weight: 65 kg

DRUGS (15)
  1. PANTOPRAZOLE [Concomitant]
     Active Substance: PANTOPRAZOLE
  2. NYSTATIN. [Concomitant]
     Active Substance: NYSTATIN
  3. RITUXIMAB. [Concomitant]
     Active Substance: RITUXIMAB
  4. PREDNISONE. [Concomitant]
     Active Substance: PREDNISONE
  5. TACROLIMUS. [Concomitant]
     Active Substance: TACROLIMUS
     Dosage: 3 MG + 3.5 MG 12/12H
  6. COTRIMOXAZOLE [Concomitant]
     Active Substance: SULFAMETHOXAZOLE\TRIMETHOPRIM
     Dosage: 960 MG/DAY
  7. ATARAX [Concomitant]
     Active Substance: HYDROXYZINE HYDROCHLORIDE
     Route: 048
  8. PYRIDOXINE [Concomitant]
     Active Substance: PYRIDOXINE
  9. LACTULOSE. [Concomitant]
     Active Substance: LACTULOSE
     Dosage: 1 SACHET TWICE A DAY
  10. FOLICIL [Concomitant]
     Active Substance: FOLIC ACID
     Route: 048
  11. THYMOGLOBULIN [Suspect]
     Active Substance: LAPINE T-LYMPHOCYTE IMMUNE GLOBULIN
     Indication: PROPHYLAXIS AGAINST TRANSPLANT REJECTION
     Dosage: 200MG/DIA 7 DAYS
     Route: 042
     Dates: start: 20090609, end: 20090616
  12. ISONIAZID. [Concomitant]
     Active Substance: ISONIAZID
  13. FUROSEMIDE. [Concomitant]
     Active Substance: FUROSEMIDE
     Dosage: 80 MG + 40 MG (MORNING + SNACK)
  14. VALGANCICLOVIR. [Concomitant]
     Active Substance: VALGANCICLOVIR
  15. MYCOPHENOLATE MOFETIL. [Concomitant]
     Active Substance: MYCOPHENOLATE MOFETIL
     Dosage: 1000 MG + 500 MG 12/12H

REACTIONS (1)
  - Haemolytic anaemia [Unknown]

NARRATIVE: CASE EVENT DATE: 20090624
